FAERS Safety Report 23616465 (Version 1)
Quarter: 2024Q1

REPORT INFORMATION
  Report Type: Spontaneous
  Country: US (occurrence: None)
  Receive Date: 20240308
  Receipt Date: 20240308
  Transmission Date: 20240409
  Serious: Yes (unspecified)
  Sender: FDA-Public Use
  Company Number: None

PATIENT
  Age: 63 Week
  Sex: Male
  Weight: 81 kg

DRUGS (3)
  1. SKELAXIN [Suspect]
     Active Substance: METAXALONE
     Dosage: 6 TABLETS 3 TIMES A DAY ORAL
     Route: 048
     Dates: start: 20240307, end: 20240307
  2. AMOXICILLIN [Concomitant]
     Active Substance: AMOXICILLIN
  3. NONE TD [Concomitant]

REACTIONS (1)
  - Adverse reaction [None]

NARRATIVE: CASE EVENT DATE: 20240307
